FAERS Safety Report 8139238-9 (Version None)
Quarter: 2012Q1

REPORT INFORMATION
  Report Type: 
  Country: None (occurrence: None)
  Receive Date: 20120215
  Receipt Date: 20120201
  Transmission Date: 20120608
  Serious: Yes (Other)
  Sender: FDA-Public Use
  Company Number: SI-CELGENEUS-261-50794-12020090

PATIENT
  Sex: Male

DRUGS (1)
  1. VIDAZA [Suspect]
     Route: 065

REACTIONS (3)
  - NEPHROTIC SYNDROME [None]
  - THROMBOCYTOPENIA [None]
  - RENAL FAILURE [None]
